FAERS Safety Report 8307400-8 (Version None)
Quarter: 2012Q2

REPORT INFORMATION
  Report Type: 
  Country: None (occurrence: None)
  Receive Date: 20120424
  Receipt Date: 20120417
  Transmission Date: 20120825
  Serious: Yes (Other)
  Sender: FDA-Public Use
  Company Number: GB-PFIZER INC-2012095597

PATIENT
  Age: 39 Year
  Sex: Female

DRUGS (1)
  1. DEPO-PROVERA [Suspect]
     Dosage: 4 INJECTIONS

REACTIONS (2)
  - ARTHRALGIA [None]
  - MUSCULOSKELETAL CHEST PAIN [None]
